FAERS Safety Report 24981053 (Version 1)
Quarter: 2025Q1

REPORT INFORMATION
  Report Type: Spontaneous
  Country: US (occurrence: None)
  Receive Date: 20250217
  Receipt Date: 20250217
  Transmission Date: 20250409
  Serious: Yes (Hospitalization)
  Sender: FDA-CTU
  Company Number: None

PATIENT
  Age: 83 Year
  Sex: Male

DRUGS (1)
  1. DROXIDOPA [Suspect]
     Active Substance: DROXIDOPA
     Indication: Multiple system atrophy
     Dosage: OTHER QUANTITY : TAKE 4 CAPSULES;?FREQUENCY : 3 TIMES A DAY;?
     Route: 048
     Dates: start: 20230321

REACTIONS (1)
  - Surgery [None]

NARRATIVE: CASE EVENT DATE: 20250201
